FAERS Safety Report 12472155 (Version 2)
Quarter: 2016Q3

REPORT INFORMATION
  Report Type: Spontaneous
  Country: US (occurrence: US)
  Receive Date: 20160616
  Receipt Date: 20160824
  Transmission Date: 20161109
  Serious: Yes (Hospitalization, Disabling, Other)
  Sender: FDA-Public Use
  Company Number: US-PFIZER INC-2016299493

PATIENT
  Age: 48 Year
  Sex: Male

DRUGS (2)
  1. DEPO-TESTOSTERONE [Suspect]
     Active Substance: TESTOSTERONE CYPIONATE
     Indication: HORMONE REPLACEMENT THERAPY
     Dosage: UNK, EVERY TWO WEEKS
     Dates: start: 199801
  2. DEPO-TESTOSTERONE [Suspect]
     Active Substance: TESTOSTERONE CYPIONATE
     Dosage: UNK, EVERY TWO WEEKS
     Dates: start: 1999, end: 2001

REACTIONS (15)
  - Diabetes mellitus [Unknown]
  - Balance disorder [Unknown]
  - Cerebrovascular accident [Unknown]
  - Amnesia [Unknown]
  - Dysgraphia [Unknown]
  - Speech disorder [Unknown]
  - Deafness [Unknown]
  - Frustration tolerance decreased [Unknown]
  - Hypertension [Unknown]
  - Sensory loss [Unknown]
  - Disturbance in attention [Unknown]
  - Sleep apnoea syndrome [Unknown]
  - Ataxia [Unknown]
  - Stress [Unknown]
  - Motor dysfunction [Unknown]

NARRATIVE: CASE EVENT DATE: 19990510
